FAERS Safety Report 22927172 (Version 2)
Quarter: 2023Q4

REPORT INFORMATION
  Report Type: Spontaneous
  Country: JP (occurrence: JP)
  Receive Date: 20230911
  Receipt Date: 20231123
  Transmission Date: 20240110
  Serious: Yes (Other)
  Sender: FDA-Public Use
  Company Number: JP-MSD-2309JPN000688J

PATIENT
  Age: 6 Decade
  Sex: Male

DRUGS (2)
  1. ISENTRESS [Suspect]
     Active Substance: RALTEGRAVIR POTASSIUM
     Indication: HIV infection
     Dosage: 800 MILLIGRAM/DAY
     Route: 048
     Dates: start: 20181116, end: 20191029
  2. DESCOVY [Concomitant]
     Active Substance: EMTRICITABINE\TENOFOVIR ALAFENAMIDE FUMARATE
     Indication: HIV infection
     Dosage: 1 DOSAGE FORM/DAY
     Route: 048
     Dates: start: 20170501, end: 20191029

REACTIONS (1)
  - HIV viraemia [Recovering/Resolving]

NARRATIVE: CASE EVENT DATE: 20190821
